FAERS Safety Report 17266816 (Version 5)
Quarter: 2020Q2

REPORT INFORMATION
  Report Type: Spontaneous
  Country: CO (occurrence: CO)
  Receive Date: 20200114
  Receipt Date: 20200605
  Transmission Date: 20200713
  Serious: Yes (Hospitalization, Other)
  Sender: FDA-Public Use
  Company Number: CO-PFIZER INC-2019416692

PATIENT
  Age: 64 Year
  Sex: Male

DRUGS (2)
  1. XALKORI [Suspect]
     Active Substance: CRIZOTINIB
     Indication: LUNG CANCER METASTATIC
     Dosage: 250 MG, 2X/DAY (ONE IN THE MORNING AND THE OTHER AT NIGHT)
     Route: 048
     Dates: start: 201805, end: 201908
  2. XALKORI [Suspect]
     Active Substance: CRIZOTINIB
     Dosage: 250 MG, 1X/DAY

REACTIONS (16)
  - Intentional product use issue [Unknown]
  - Thrombosis [Unknown]
  - Peripheral swelling [Not Recovered/Not Resolved]
  - Cough [Unknown]
  - Tremor [Recovered/Resolved]
  - Choking [Unknown]
  - Chest pain [Unknown]
  - Nausea [Recovered/Resolved]
  - Myalgia [Unknown]
  - Malaise [Recovered/Resolved]
  - Bone pain [Unknown]
  - Decreased appetite [Unknown]
  - Weight decreased [Recovered/Resolved]
  - Dizziness [Unknown]
  - Depression [Unknown]
  - Condition aggravated [Recovered/Resolved]

NARRATIVE: CASE EVENT DATE: 2019
